FAERS Safety Report 8138171 (Version 4)
Quarter: 2012Q4

REPORT INFORMATION
  Report Type: 
  Country: US (occurrence: US)
  Receive Date: 20110915
  Receipt Date: 20120920
  Transmission Date: 20130627
  Serious: Yes (Hospitalization, Other)
  Sender: FDA-Public Use
  Company Number: US-GLAXOSMITHKLINE-A0944654A

PATIENT
  Age: 58 Year
  Sex: Male
  Weight: 99.1 kg

DRUGS (1)
  1. AVANDIA [Suspect]
     Indication: DIABETES MELLITUS
     Dosage: 4MG Per day
     Route: 048
     Dates: start: 2005, end: 201011

REACTIONS (2)
  - Myocardial infarction [Recovering/Resolving]
  - Coronary arterial stent insertion [Unknown]
